FAERS Safety Report 22241721 (Version 10)
Quarter: 2025Q3

REPORT INFORMATION
  Report Type: Spontaneous
  Country: JP (occurrence: JP)
  Receive Date: 20230421
  Receipt Date: 20250721
  Transmission Date: 20251021
  Serious: Yes (Death, Other)
  Sender: NOVARTIS
  Company Number: JP-002147023-NVSJ2023JP006698

PATIENT
  Age: 50 Year
  Sex: Male
  Weight: 87.3 kg

DRUGS (9)
  1. LUTATHERA [Suspect]
     Active Substance: LUTETIUM OXODOTREOTIDE LU-177
     Indication: Paraganglion neoplasm
     Route: 042
     Dates: start: 20230413, end: 20230413
  2. LUTATHERA [Suspect]
     Active Substance: LUTETIUM OXODOTREOTIDE LU-177
     Indication: Phaeochromocytoma
  3. ARGININE\LYSINE [Suspect]
     Active Substance: ARGININE\LYSINE
     Indication: Product used for unknown indication
     Route: 042
     Dates: start: 20230413
  4. CARDENALIN [Concomitant]
     Active Substance: DOXAZOSIN MESYLATE
     Indication: Hypertension
     Dosage: 8 MG, QID
     Route: 048
     Dates: start: 202205, end: 20230415
  5. ADALAT [Concomitant]
     Active Substance: NIFEDIPINE
     Indication: Hypertension
     Dosage: 40 MG, BID
     Route: 048
     Dates: start: 202205, end: 20230415
  6. METYROSINE [Concomitant]
     Active Substance: METYROSINE
     Indication: Blood catecholamines increased
     Dosage: 250 MG, BID
     Route: 048
     Dates: start: 202209, end: 20230415
  7. PREGABALIN [Concomitant]
     Active Substance: PREGABALIN
     Indication: Cancer pain
     Dosage: 150 MG, QD
     Route: 048
     Dates: start: 20230404, end: 20230415
  8. OXYCONTIN [Concomitant]
     Active Substance: OXYCODONE HYDROCHLORIDE
     Indication: Cancer pain
     Route: 048
     Dates: start: 20230404, end: 20230412
  9. OXYCONTIN [Concomitant]
     Active Substance: OXYCODONE HYDROCHLORIDE
     Dosage: 20 MG, BID
     Route: 048
     Dates: start: 20230413, end: 20230415

REACTIONS (21)
  - Pulmonary alveolar haemorrhage [Fatal]
  - Haemoptysis [Fatal]
  - Vomiting [Fatal]
  - Loss of consciousness [Fatal]
  - Cardio-respiratory arrest [Fatal]
  - Respiratory failure [Fatal]
  - Hypertensive crisis [Fatal]
  - Pneumonia aspiration [Fatal]
  - Pulmonary oedema [Fatal]
  - Acute respiratory distress syndrome [Fatal]
  - Cardiac dysfunction [Fatal]
  - Pulmonary vascular disorder [Fatal]
  - Aspartate aminotransferase increased [Unknown]
  - Alanine aminotransferase increased [Unknown]
  - Hypoxia [Unknown]
  - Blood potassium increased [Unknown]
  - Fall [Unknown]
  - Administration site extravasation [Unknown]
  - Injection site swelling [Unknown]
  - General physical health deterioration [Unknown]
  - Pyrexia [Unknown]

NARRATIVE: CASE EVENT DATE: 20230413
